FAERS Safety Report 4677414-8 (Version None)
Quarter: 2005Q2

REPORT INFORMATION
  Report Type: 
  Country: None (occurrence: None)
  Receive Date: 20050527
  Receipt Date: 20050527
  Transmission Date: 20051028
  Serious: No
  Sender: FDA-Public Use
  Company Number: None

PATIENT
  Age: 56 Year
  Sex: Female
  Weight: 141.0687 kg

DRUGS (2)
  1. CELEBREX [Suspect]
     Indication: ARTHRITIS
     Dosage: ONCE DAILY ORAL
     Route: 048
     Dates: start: 20000107, end: 20050526
  2. CELEBREX [Suspect]
     Indication: OSTEOARTHRITIS
     Dosage: ONCE DAILY ORAL
     Route: 048
     Dates: start: 20000107, end: 20050526

REACTIONS (1)
  - ATRIAL FIBRILLATION [None]
